FAERS Safety Report 8135813-6 (Version None)
Quarter: 2012Q1

REPORT INFORMATION
  Report Type: 
  Country: None (occurrence: None)
  Receive Date: 20120214
  Receipt Date: 20120209
  Transmission Date: 20120608
  Serious: Yes (Hospitalization)
  Sender: FDA-Public Use
  Company Number: US-GLAXOSMITHKLINE-A0913465A

PATIENT
  Age: 57 Year
  Sex: Male
  Weight: 90.9 kg

DRUGS (6)
  1. GLUCOPHAGE [Concomitant]
  2. AMARYL [Concomitant]
  3. CARBAMAZEPINE [Concomitant]
  4. AVANDIA [Suspect]
     Indication: DIABETES MELLITUS
     Dosage: 8MG PER DAY
     Route: 048
     Dates: start: 19990101, end: 20080101
  5. FOSINOPRIL SODIUM [Concomitant]
  6. PREVACID [Concomitant]

REACTIONS (5)
  - CARDIAC DISORDER [None]
  - CARDIOVASCULAR DISORDER [None]
  - CORONARY ARTERY DISEASE [None]
  - CEREBROVASCULAR ACCIDENT [None]
  - TRANSIENT ISCHAEMIC ATTACK [None]
